FAERS Safety Report 9602459 (Version 1)
Quarter: 2013Q4

REPORT INFORMATION
  Report Type: Spontaneous
  Country: ES (occurrence: ES)
  Receive Date: 20131007
  Receipt Date: 20131007
  Transmission Date: 20140711
  Serious: Yes (Other)
  Sender: FDA-Public Use
  Company Number: ES-PFIZER INC-2013284182

PATIENT
  Age: 58 Year
  Sex: Male

DRUGS (3)
  1. RAPAMUNE [Suspect]
     Dosage: UNK
     Route: 048
     Dates: start: 20030506
  2. CELLCEPT [Suspect]
     Dosage: UNK
     Route: 048
     Dates: start: 20021107, end: 20021107
  3. SANDIMMUN NEORAL [Suspect]
     Dosage: UNK
     Route: 048
     Dates: start: 20021107

REACTIONS (1)
  - Lung neoplasm malignant [Unknown]
